FAERS Safety Report 5242486-9 (Version None)
Quarter: 2007Q1

REPORT INFORMATION
  Report Type: 
  Country: None (occurrence: None)
  Receive Date: 20070214
  Receipt Date: 20070208
  Transmission Date: 20070707
  Serious: Yes (Other)
  Sender: FDA-Public Use
  Company Number: 010675

PATIENT
  Age: 34 Year
  Sex: Male
  Weight: 81.6 kg

DRUGS (1)
  1. TRAMADOL HCL [Suspect]
     Indication: PAIN
     Dosage: 1 TABLET, Q4HR, ORAL
     Route: 048
     Dates: start: 20070115, end: 20070115

REACTIONS (5)
  - BLOOD PRESSURE INCREASED [None]
  - CHEST DISCOMFORT [None]
  - CHILLS [None]
  - HEART RATE INCREASED [None]
  - MYOCARDIAL INFARCTION [None]
